FAERS Safety Report 7925094-8 (Version None)
Quarter: 2011Q4

REPORT INFORMATION
  Report Type: 
  Country: None (occurrence: None)
  Receive Date: 20111118
  Receipt Date: 20110331
  Transmission Date: 20120403
  Serious: No
  Sender: FDA-Public Use
  Company Number: US-AMGEN-USASP2011017192

PATIENT
  Age: 52 Year
  Sex: Female

DRUGS (1)
  1. ENBREL [Suspect]
     Indication: RHEUMATOID ARTHRITIS
     Dosage: 50 MG, QWK
     Dates: start: 20110208, end: 20110323

REACTIONS (9)
  - PRURITUS GENERALISED [None]
  - INJECTION SITE ERYTHEMA [None]
  - SINUSITIS [None]
  - HEADACHE [None]
  - INJECTION SITE INDURATION [None]
  - EPISTAXIS [None]
  - NAUSEA [None]
  - INJECTION SITE SWELLING [None]
  - INJECTION SITE PRURITUS [None]
